FAERS Safety Report 9642078 (Version 1)
Quarter: 2013Q4

REPORT INFORMATION
  Report Type: Report from Study
  Country: CA (occurrence: CA)
  Receive Date: 20131023
  Receipt Date: 20131023
  Transmission Date: 20140711
  Serious: Yes (Other)
  Sender: FDA-Public Use
  Company Number: CA-ROCHE-1292324

PATIENT
  Sex: Male
  Weight: 119.7 kg

DRUGS (13)
  1. ACTEMRA [Suspect]
     Indication: RHEUMATOID ARTHRITIS
     Route: 042
  2. KEPPRA [Concomitant]
     Route: 065
  3. CALCIUM [Concomitant]
     Route: 065
  4. CRESTOR [Concomitant]
     Route: 065
  5. NEXIUM [Concomitant]
     Route: 065
  6. DICLOFENAC [Concomitant]
     Route: 065
  7. VITAMIN D [Concomitant]
     Route: 065
  8. NORVASC [Concomitant]
     Route: 065
  9. HYDROXYCHLOROQUINE [Concomitant]
     Route: 065
  10. METHOTREXATE [Concomitant]
     Route: 065
  11. FOLIC ACID [Concomitant]
     Route: 065
  12. ACCURETIC [Concomitant]
     Route: 065
  13. DILAUDID [Concomitant]
     Route: 065

REACTIONS (5)
  - Depression [Unknown]
  - Suicidal ideation [Unknown]
  - Arthralgia [Unknown]
  - Anger [Unknown]
  - Abdominal pain [Unknown]
